FAERS Safety Report 9493347 (Version 3)
Quarter: 2013Q4

REPORT INFORMATION
  Report Type: Spontaneous
  Country: JP (occurrence: JP)
  Receive Date: 20130902
  Receipt Date: 20131009
  Transmission Date: 20140711
  Serious: Yes (Death, Other)
  Sender: FDA-Public Use
  Company Number: PHHY2013JP093479

PATIENT
  Age: 70 Year
  Sex: Female

DRUGS (2)
  1. AFINITOR [Suspect]
     Indication: RENAL CELL CARCINOMA
     Route: 048
  2. SORAFENIB TOSILATE [Concomitant]
     Indication: RENAL CELL CARCINOMA

REACTIONS (5)
  - Renal cell carcinoma [Fatal]
  - Abulia [Unknown]
  - Palmar-plantar erythrodysaesthesia syndrome [Unknown]
  - Interstitial lung disease [Unknown]
  - Decreased appetite [Unknown]
